FAERS Safety Report 11826086 (Version 1)
Quarter: 2015Q4

REPORT INFORMATION
  Report Type: Spontaneous
  Country: DK (occurrence: DK)
  Receive Date: 20151211
  Receipt Date: 20151211
  Transmission Date: 20160305
  Serious: Yes (Congenital Anomaly)
  Sender: FDA-Public Use
  Company Number: DK-WATSON-2015-27009

PATIENT
  Age: 4 Month
  Sex: Male
  Weight: 18 kg

DRUGS (1)
  1. SERTRALINE [Suspect]
     Active Substance: SERTRALINE HYDROCHLORIDE
     Indication: ANXIETY
     Dosage: 1 DF, DAILY; THE MOTHER TOOK THE FOLLOWING DOSE: 1 TABLET DAILY, STRENGTH: 50-100 MG
     Route: 064
     Dates: start: 20090101, end: 20110101

REACTIONS (6)
  - Foetal exposure during pregnancy [Unknown]
  - Speech disorder developmental [Not Recovered/Not Resolved]
  - Memory impairment [Not Recovered/Not Resolved]
  - Language disorder [Not Recovered/Not Resolved]
  - Fine motor skill dysfunction [Not Recovered/Not Resolved]
  - Otitis media [Not Recovered/Not Resolved]

NARRATIVE: CASE EVENT DATE: 20110101
